FAERS Safety Report 7061860-1 (Version None)
Quarter: 2010Q4

REPORT INFORMATION
  Report Type: 
  Country: None (occurrence: None)
  Receive Date: 20101026
  Receipt Date: 20101025
  Transmission Date: 20110411
  Serious: Yes (Hospitalization)
  Sender: FDA-Public Use
  Company Number: GXKR2010DE11974

PATIENT
  Age: 82 Year
  Sex: Female

DRUGS (2)
  1. ACETYLSALICYLIC ACID SRT [Suspect]
     Indication: PRODUCT USED FOR UNKNOWN INDICATION
     Dosage: 100 MG, QD
     Route: 048
  2. DICLOFENAC (NGX) [Suspect]
     Indication: PAIN
     Dosage: 50 MG, BID
     Route: 048
     Dates: end: 20101003

REACTIONS (1)
  - COLITIS [None]
